FAERS Safety Report 8322418-7 (Version None)
Quarter: 2012Q2

REPORT INFORMATION
  Report Type: 
  Country: None (occurrence: None)
  Receive Date: 20120430
  Receipt Date: 20120416
  Transmission Date: 20120825
  Serious: Yes (Death)
  Sender: FDA-Public Use
  Company Number: TH-ROCHE-1063684

PATIENT
  Sex: Male
  Weight: 60 kg

DRUGS (5)
  1. PEGASYS [Suspect]
     Dates: start: 20120111
  2. PEGASYS [Suspect]
     Indication: HEPATITIS C
     Dates: start: 20111123
  3. PEGASYS [Suspect]
     Dates: start: 20111214
  4. BLINDED ALISPORIVIR [Suspect]
     Indication: HEPATITIS C
     Route: 048
     Dates: start: 20111123, end: 20120321
  5. COPEGUS [Suspect]
     Indication: HEPATITIS C
     Dates: start: 20111123, end: 20120321

REACTIONS (2)
  - PANCREATITIS NECROTISING [None]
  - MULTI-ORGAN FAILURE [None]
